FAERS Safety Report 14825559 (Version 1)
Quarter: 2018Q2

REPORT INFORMATION
  Report Type: Spontaneous
  Country: FR (occurrence: FR)
  Receive Date: 20180430
  Receipt Date: 20180430
  Transmission Date: 20180711
  Serious: Yes (Other)
  Sender: FDA-Public Use
  Company Number: FR-MERCK KGAA-2046785

PATIENT
  Age: 46 Year
  Sex: Female

DRUGS (1)
  1. NOVOTHYROX [Suspect]
     Active Substance: LEVOTHYROXINE SODIUM
     Indication: POST PROCEDURAL HYPOTHYROIDISM
     Dates: start: 201706

REACTIONS (22)
  - Pain in extremity [None]
  - Diarrhoea [None]
  - Nausea [None]
  - Oedema peripheral [None]
  - Visual impairment [None]
  - Blood thyroid stimulating hormone decreased [None]
  - Hyperthyroidism [None]
  - Musculoskeletal pain [None]
  - Impaired work ability [None]
  - Asthenia [None]
  - Thyroxine free increased [None]
  - Tendonitis [None]
  - Arthralgia [None]
  - Hypokinesia [None]
  - Constipation [None]
  - Eyelid disorder [None]
  - Disturbance in attention [None]
  - Dyslipidaemia [None]
  - Pain [None]
  - Fatigue [None]
  - Gastrointestinal disorder [None]
  - Myalgia [None]

NARRATIVE: CASE EVENT DATE: 201707
